FAERS Safety Report 23545566 (Version 1)
Quarter: 2024Q1

REPORT INFORMATION
  Report Type: Spontaneous
  Country: US (occurrence: None)
  Receive Date: 20240219
  Receipt Date: 20240219
  Transmission Date: 20240409
  Serious: Yes (Hospitalization)
  Sender: FDA-Public Use
  Company Number: None

PATIENT
  Age: 70 Year
  Sex: Female

DRUGS (1)
  1. OPSUMIT [Suspect]
     Active Substance: MACITENTAN
     Indication: Pulmonary arterial hypertension
     Dosage: FREQUENCY : DAILY;?
     Route: 048
     Dates: start: 201911

REACTIONS (5)
  - Abdominal discomfort [None]
  - Diarrhoea [None]
  - Headache [None]
  - Regurgitation [None]
  - Therapy interrupted [None]

NARRATIVE: CASE EVENT DATE: 20240123
